FAERS Safety Report 5736754-1 (Version None)
Quarter: 2008Q2

REPORT INFORMATION
  Report Type: 
  Country: None (occurrence: None)
  Receive Date: 20080513
  Receipt Date: 20080505
  Transmission Date: 20081010
  Serious: Yes (Life-Threatening, Other)
  Sender: FDA-Public Use
  Company Number: CA-BOEHRINGER INGELHEIM GMBH, GERMANY-2008-BP-07051RO

PATIENT
  Age: 11 Year
  Sex: Male

DRUGS (16)
  1. FLUCONAZOLE [Suspect]
     Indication: CANDIDIASIS
     Route: 042
  2. MEROPENEM [Concomitant]
  3. FUROSEMIDE [Concomitant]
  4. KETAMINE HCL [Concomitant]
  5. MIDAZOLAM HCL [Concomitant]
  6. LORAZEPAM [Concomitant]
  7. CHLORAL HYDRATE [Concomitant]
     Indication: SEDATION
  8. CHLORAL HYDRATE [Concomitant]
  9. ACETAMINOPHEN [Concomitant]
  10. IBUPROFEN TABLETS [Concomitant]
  11. MAGNESIUM SULFATE [Concomitant]
     Indication: HYPOMAGNESAEMIA
  12. MORPHINE [Concomitant]
     Indication: ANALGESIA
     Route: 042
  13. AMIODARONE HCL [Concomitant]
     Indication: VENTRICULAR TACHYCARDIA
     Route: 042
  14. SODIUM BICARBONATE [Concomitant]
     Indication: VENTRICULAR TACHYCARDIA
  15. LIDOCAINE [Concomitant]
     Indication: VENTRICULAR TACHYCARDIA
  16. LIDOCAINE [Concomitant]

REACTIONS (9)
  - EXTRASYSTOLES [None]
  - HYPOCALCAEMIA [None]
  - HYPOKALAEMIA [None]
  - HYPOMAGNESAEMIA [None]
  - RESPIRATORY ACIDOSIS [None]
  - TORSADE DE POINTES [None]
  - VENTRICULAR ARRHYTHMIA [None]
  - VENTRICULAR EXTRASYSTOLES [None]
  - VENTRICULAR TACHYCARDIA [None]
